FAERS Safety Report 4927112-8 (Version None)
Quarter: 2006Q1

REPORT INFORMATION
  Report Type: 
  Country: None (occurrence: None)
  Receive Date: 20060222
  Receipt Date: 20060206
  Transmission Date: 20060701
  Serious: Yes (Death, Hospitalization)
  Sender: FDA-Public Use
  Company Number: COT_0396_2006

PATIENT
  Age: 52 Year
  Sex: Male
  Weight: 108.8633 kg

DRUGS (13)
  1. VENTAVIS [Suspect]
     Indication: PULMONARY HYPERTENSION
     Dosage: 5 MCG 6XD IH
     Route: 055
     Dates: start: 20060103
  2. FUROSEMIDE [Concomitant]
  3. DIGOXIN [Concomitant]
  4. PRILOSEC [Concomitant]
  5. GLIMEPIRIDE [Concomitant]
  6. CARDIZEM [Concomitant]
  7. PREDNISONE [Concomitant]
  8. XANAX [Concomitant]
  9. K-DUR 10 [Concomitant]
  10. LEVOXYL [Concomitant]
  11. NAPROXEN SODIUM [Concomitant]
  12. COUMADIN [Concomitant]
  13. OXYGEN [Concomitant]

REACTIONS (3)
  - ABDOMINAL NEOPLASM [None]
  - BONE NEOPLASM MALIGNANT [None]
  - NEOPLASM MALIGNANT [None]
